FAERS Safety Report 7000015-3 (Version None)
Quarter: 2010Q3

REPORT INFORMATION
  Report Type: 
  Country: None (occurrence: None)
  Receive Date: 20100920
  Receipt Date: 20090721
  Transmission Date: 20110219
  Serious: Yes (Other)
  Sender: FDA-Public Use
  Company Number: US-ASTRAZENECA-2007UW04980

PATIENT
  Age: 18949 Day
  Sex: Female

DRUGS (4)
  1. SEROQUEL [Suspect]
     Dosage: 200 MG AS REQUIRED
     Route: 048
     Dates: start: 20050414
  2. ATENOLOL [Concomitant]
     Dates: start: 20050414
  3. EFFEXOR [Concomitant]
     Dates: start: 20050414
  4. ZELNORM [Concomitant]
     Dates: start: 20050414

REACTIONS (4)
  - DIABETES MELLITUS [None]
  - DIABETIC KETOACIDOSIS [None]
  - PANCREATITIS [None]
  - TYPE 2 DIABETES MELLITUS [None]
